FAERS Safety Report 26167401 (Version 1)
Quarter: 2025Q4

REPORT INFORMATION
  Report Type: Spontaneous
  Country: EU (occurrence: EU)
  Receive Date: 20251217
  Receipt Date: 20251217
  Transmission Date: 20260119
  Serious: Yes (Death, Other)
  Sender: BIOVITRUM
  Company Number: EU-BIOVITRUM-2025-DE-017569

PATIENT
  Age: 18 Year
  Sex: Female

DRUGS (3)
  1. KINERET [Suspect]
     Active Substance: ANAKINRA
     Indication: Still^s disease
     Dates: start: 201608, end: 201611
  2. KINERET [Suspect]
     Active Substance: ANAKINRA
     Dosage: VARYING COMBINATION THERAPIES WITH AND WITHOUT KINERET
     Dates: start: 201707, end: 201902
  3. KINERET [Suspect]
     Active Substance: ANAKINRA
     Dosage: TWICE DAILY
     Dates: start: 201801, end: 201902

REACTIONS (5)
  - Death [Fatal]
  - Septic shock [Unknown]
  - Lung disorder [Unknown]
  - Pericarditis [Unknown]
  - Off label use [Recovered/Resolved]

NARRATIVE: CASE EVENT DATE: 20180101
